FAERS Safety Report 8152645-3 (Version None)
Quarter: 2012Q1

REPORT INFORMATION
  Report Type: 
  Country: None (occurrence: None)
  Receive Date: 20120221
  Receipt Date: 20120208
  Transmission Date: 20120608
  Serious: Yes (Other)
  Sender: FDA-Public Use
  Company Number: DE-JNJFOC-20120204708

PATIENT
  Sex: Female
  Weight: 3.82 kg

DRUGS (4)
  1. RISPERDAL [Suspect]
     Indication: FOETAL EXPOSURE DURING PREGNANCY
     Route: 064
     Dates: start: 20101207, end: 20110901
  2. SERTRALINE HYDROCHLORIDE [Suspect]
     Indication: FOETAL EXPOSURE DURING PREGNANCY
     Route: 064
     Dates: end: 20100211
  3. PROTAPHANE [Suspect]
     Indication: FOETAL EXPOSURE DURING PREGNANCY
     Route: 064
     Dates: end: 20110901
  4. ACTRAPID [Suspect]
     Indication: FOETAL EXPOSURE DURING PREGNANCY
     Route: 064
     Dates: end: 20110901

REACTIONS (6)
  - BLOOD GLUCOSE DECREASED [None]
  - HYPERTONIA NEONATAL [None]
  - NEONATAL RESPIRATORY DISTRESS SYNDROME [None]
  - CEREBRAL CALCIFICATION [None]
  - FOETAL MACROSOMIA [None]
  - CLONUS [None]
